FAERS Safety Report 10143310 (Version 1)
Quarter: 2014Q2

REPORT INFORMATION
  Report Type: Spontaneous
  Country: TW (occurrence: None)
  Receive Date: 20140428
  Receipt Date: 20140428
  Transmission Date: 20141212
  Serious: Yes (Hospitalization)
  Sender: FDA-Public Use
  Company Number: 2014P1003400

PATIENT
  Age: 4 Year
  Sex: Female

DRUGS (1)
  1. PHENOBARBITAL [Suspect]
     Indication: CONVULSION

REACTIONS (6)
  - Altered state of consciousness [None]
  - Stevens-Johnson syndrome [None]
  - Hepatic encephalopathy [None]
  - Prothrombin time prolonged [None]
  - International normalised ratio increased [None]
  - Corneal erosion [None]
